FAERS Safety Report 7798435-2 (Version None)
Quarter: 2011Q4

REPORT INFORMATION
  Report Type: 
  Country: None (occurrence: None)
  Receive Date: 20111005
  Receipt Date: 20111003
  Transmission Date: 20120403
  Serious: Yes (Life-Threatening)
  Sender: FDA-Public Use
  Company Number: BR-BAYER-2011-071625

PATIENT
  Age: 66 Year
  Sex: Male

DRUGS (1)
  1. ULTRAVIST 150 [Suspect]
     Indication: COMPUTERISED TOMOGRAM CORONARY ARTERY
     Dosage: 95 ML, ONCE
     Route: 042
     Dates: start: 20110810, end: 20110810

REACTIONS (4)
  - SPEECH DISORDER [None]
  - APHASIA [None]
  - FACE OEDEMA [None]
  - FORMICATION [None]
